FAERS Safety Report 4283190-3 (Version None)
Quarter: 2004Q1

REPORT INFORMATION
  Report Type: 
  Country: None (occurrence: None)
  Receive Date: 20040129
  Receipt Date: 20040116
  Transmission Date: 20041129
  Serious: Yes (Life-Threatening, Hospitalization)
  Sender: FDA-Public Use
  Company Number: 2004003787

PATIENT
  Age: 43 Year
  Sex: Male

DRUGS (4)
  1. NEURONTIN [Suspect]
     Indication: EPILEPSY
     Dosage: 1800 MG (TID),
     Dates: start: 20031101
  2. BROMAZEPAM (BROMAZEPAM) [Concomitant]
  3. ANTIHYPERTENSIVES [Concomitant]
  4. HYPNOTICS AND SEDATIVES [Concomitant]

REACTIONS (3)
  - PNEUMONIA [None]
  - SEPTIC SHOCK [None]
  - STATUS EPILEPTICUS [None]
